FAERS Safety Report 8578908-5 (Version None)
Quarter: 2012Q3

REPORT INFORMATION
  Report Type: 
  Country: None (occurrence: None)
  Receive Date: 20120808
  Receipt Date: 20120730
  Transmission Date: 20120928
  Serious: Yes (Other)
  Sender: FDA-Public Use
  Company Number: JP-EISAI INC-E7389-02795-SPO-JP

PATIENT
  Age: 51 Year
  Sex: Female

DRUGS (1)
  1. HALAVEN [Suspect]
     Indication: BREAST CANCER RECURRENT
     Route: 041
     Dates: start: 20120413, end: 20120528

REACTIONS (2)
  - ERYTHEMA INFECTIOSUM [None]
  - NEUTROPENIA [None]
